FAERS Safety Report 23484142 (Version 1)
Quarter: 2024Q1

REPORT INFORMATION
  Report Type: Other
  Country: CN (occurrence: None)
  Receive Date: 20240206
  Receipt Date: 20240206
  Transmission Date: 20240410
  Serious: Yes (Other)
  Sender: FDA-Public Use
  Company Number: CN-ROCHE-3502169

PATIENT

DRUGS (6)
  1. BEVACIZUMAB [Suspect]
     Active Substance: BEVACIZUMAB
     Indication: Colorectal cancer metastatic
     Route: 065
  2. OXALIPLATIN [Suspect]
     Active Substance: OXALIPLATIN
     Indication: Colorectal cancer metastatic
     Route: 041
  3. LEUCOVORIN CALCIUM [Suspect]
     Active Substance: LEUCOVORIN CALCIUM
     Indication: Colorectal cancer metastatic
     Route: 041
  4. FLUOROURACIL [Suspect]
     Active Substance: FLUOROURACIL
     Indication: Colorectal cancer metastatic
     Route: 041
  5. FLUOROURACIL [Suspect]
     Active Substance: FLUOROURACIL
     Route: 041
  6. TROPISETRON [Concomitant]
     Active Substance: TROPISETRON

REACTIONS (12)
  - Anaemia [Unknown]
  - Abdominal pain [Unknown]
  - Diarrhoea [Unknown]
  - Stomatitis [Unknown]
  - Nausea [Unknown]
  - Vomiting [Unknown]
  - Fatigue [Unknown]
  - Thrombocytopenia [Unknown]
  - Leukopenia [Unknown]
  - Hypertension [Unknown]
  - Pyrexia [Unknown]
  - Hepatic enzyme increased [Unknown]
